FAERS Safety Report 6779503-0 (Version None)
Quarter: 2010Q2

REPORT INFORMATION
  Report Type: 
  Country: None (occurrence: None)
  Receive Date: 20100618
  Receipt Date: 20100607
  Transmission Date: 20101027
  Serious: Yes (Other)
  Sender: FDA-Public Use
  Company Number: US-ELI_LILLY_AND_COMPANY-US201004006107

PATIENT
  Sex: Male
  Weight: 117.91 kg

DRUGS (3)
  1. BYETTA [Suspect]
     Indication: TYPE 2 DIABETES MELLITUS
     Dosage: 5 UG, 2/D
     Dates: end: 20051101
  2. BYETTA [Suspect]
     Dosage: 10 UG, 2/D
     Dates: start: 20051101
  3. DIURETICS [Concomitant]

REACTIONS (1)
  - PANCREATITIS [None]
